FAERS Safety Report 22135893 (Version 2)
Quarter: 2023Q2

REPORT INFORMATION
  Report Type: Report from Study
  Country: CN (occurrence: CN)
  Receive Date: 20230324
  Receipt Date: 20230412
  Transmission Date: 20230722
  Serious: Yes (Hospitalization)
  Sender: FDA-Public Use
  Company Number: CN-BAYER-2023A037287

PATIENT
  Age: 44 Year
  Sex: Female

DRUGS (6)
  1. REGORAFENIB [Suspect]
     Active Substance: REGORAFENIB
     Indication: Rectal adenocarcinoma
     Dosage: 120 MG, Q4WK
     Route: 048
     Dates: start: 20221222, end: 20221230
  2. REGORAFENIB [Suspect]
     Active Substance: REGORAFENIB
     Indication: Malignant ascites
     Dosage: 120 MG, Q4WK
     Route: 048
     Dates: start: 20230116, end: 20230124
  3. REGORAFENIB [Suspect]
     Active Substance: REGORAFENIB
     Indication: Rectal adenocarcinoma
     Dosage: 120 MG, Q4WK
     Route: 048
     Dates: start: 20230129, end: 20230206
  4. REGORAFENIB [Suspect]
     Active Substance: REGORAFENIB
     Indication: Rectal adenocarcinoma
     Dosage: 120 MG, Q4WK
     Route: 048
     Dates: start: 20230218, end: 20230222
  5. TIPIRACIL HYDROCHLORIDE\TRIFLURIDINE [Suspect]
     Active Substance: TIPIRACIL HYDROCHLORIDE\TRIFLURIDINE
     Indication: Rectal adenocarcinoma
     Dosage: 55 MG, BID
     Route: 048
     Dates: start: 20230225, end: 20230301
  6. TIPIRACIL HYDROCHLORIDE\TRIFLURIDINE [Suspect]
     Active Substance: TIPIRACIL HYDROCHLORIDE\TRIFLURIDINE
     Indication: Malignant ascites
     Dosage: 55 MG, BID
     Route: 048
     Dates: start: 20230304, end: 20230307

REACTIONS (5)
  - White blood cell count decreased [Recovered/Resolved with Sequelae]
  - Neutrophil count decreased [Recovered/Resolved with Sequelae]
  - Anaemia [Recovered/Resolved with Sequelae]
  - Platelet count decreased [Recovered/Resolved with Sequelae]
  - Lymphocyte count decreased [None]

NARRATIVE: CASE EVENT DATE: 20230307
